FAERS Safety Report 10080710 (Version 1)
Quarter: 2014Q2

REPORT INFORMATION
  Report Type: Report from Study
  Country: US (occurrence: US)
  Receive Date: 20140416
  Receipt Date: 20140416
  Transmission Date: 20141212
  Serious: Yes (Other)
  Sender: FDA-Public Use
  Company Number: US-ROCHE-1384754

PATIENT
  Age: 17 Year
  Sex: Female

DRUGS (7)
  1. LUCENTIS [Suspect]
     Indication: MACULAR OEDEMA
     Dosage: OD
     Route: 050
     Dates: start: 201311
  2. HUMALOG [Concomitant]
  3. LANTUS [Concomitant]
  4. LISINOPRIL [Concomitant]
  5. AMBIEN [Concomitant]
  6. SEROQUEL [Concomitant]
  7. LAMOTRIGINE [Concomitant]

REACTIONS (1)
  - Vitrectomy [Unknown]
